FAERS Safety Report 14221824 (Version 6)
Quarter: 2018Q2

REPORT INFORMATION
  Report Type: Report from Study
  Country: US (occurrence: US)
  Receive Date: 20171124
  Receipt Date: 20180521
  Transmission Date: 20180711
  Serious: No
  Sender: FDA-Public Use
  Company Number: PHEH2017US037782

PATIENT
  Age: 69 Year
  Sex: Female

DRUGS (3)
  1. COSENTYX [Suspect]
     Active Substance: SECUKINUMAB
     Dosage: 300 MG, QMO
     Route: 058
  2. COSENTYX [Suspect]
     Active Substance: SECUKINUMAB
     Indication: PSORIASIS
     Dosage: 360 MG, BID
     Route: 048
  3. VOLTAREN [Suspect]
     Active Substance: DICLOFENAC SODIUM
     Indication: PRODUCT USED FOR UNKNOWN INDICATION
     Route: 065

REACTIONS (13)
  - Depression [Unknown]
  - Malaise [Unknown]
  - Bronchitis [Recovered/Resolved]
  - Skin exfoliation [Unknown]
  - Rash [Recovered/Resolved]
  - Pruritus [Unknown]
  - Drug ineffective [Unknown]
  - Incorrect dose administered [Unknown]
  - Otorrhoea [Recovered/Resolved]
  - Incorrect route of drug administration [Unknown]
  - Psoriasis [Unknown]
  - Pruritus [Recovered/Resolved]
  - Inappropriate schedule of drug administration [Unknown]

NARRATIVE: CASE EVENT DATE: 201712
